FAERS Safety Report 7642519-6 (Version None)
Quarter: 2011Q3

REPORT INFORMATION
  Report Type: 
  Country: None (occurrence: None)
  Receive Date: 20110728
  Receipt Date: 20110714
  Transmission Date: 20111222
  Serious: Yes (Other)
  Sender: FDA-Public Use
  Company Number: TR-TYCO HEALTHCARE/MALLINCKRODT-T201101411

PATIENT
  Age: 14 Year
  Sex: Male

DRUGS (2)
  1. METHYLIN [Suspect]
     Dosage: 10 MG, QD; INITIAL DOSAGE
     Route: 048
  2. METHYLIN [Suspect]
     Indication: ATTENTION DEFICIT/HYPERACTIVITY DISORDER
     Dosage: 20 MG, QD;  DOSE INCREASE 2 MONTHS LATER
     Route: 048

REACTIONS (2)
  - ATTENTION DEFICIT/HYPERACTIVITY DISORDER [None]
  - PRIAPISM [None]
